FAERS Safety Report 13402233 (Version 1)
Quarter: 2017Q2

REPORT INFORMATION
  Report Type: Spontaneous
  Country: US (occurrence: US)
  Receive Date: 20170404
  Receipt Date: 20170404
  Transmission Date: 20170830
  Serious: No
  Sender: FDA-Public Use
  Company Number: US-ARBOR PHARMACEUTICALS, LLC-US-2016ARB001372

PATIENT
  Sex: Male

DRUGS (1)
  1. SKLICE [Suspect]
     Active Substance: IVERMECTIN
     Indication: PRODUCT USED FOR UNKNOWN INDICATION
     Dosage: UNK, LEFTOVER PORTION OF MOTHER^S PRESCRIPTION WAS USED ONCE ON THE CHILD
     Dates: start: 20160903, end: 20160903

REACTIONS (3)
  - Off label use [Unknown]
  - Wrong patient received medication [Unknown]
  - Multiple use of single-use product [Unknown]

NARRATIVE: CASE EVENT DATE: 20160903
